FAERS Safety Report 7463869-2 (Version None)
Quarter: 2011Q2

REPORT INFORMATION
  Report Type: 
  Country: None (occurrence: None)
  Receive Date: 20110506
  Receipt Date: 20110427
  Transmission Date: 20111010
  Serious: Yes (Hospitalization, Other)
  Sender: FDA-Public Use
  Company Number: LT-ELI_LILLY_AND_COMPANY-LT201104001983

PATIENT
  Sex: Male
  Weight: 70 kg

DRUGS (1)
  1. OLANZAPINE [Suspect]
     Indication: SCHIZOPHRENIA
     Dosage: 405 MG, UNK
     Route: 030
     Dates: start: 20110324, end: 20110324

REACTIONS (7)
  - MALAISE [None]
  - AGITATION [None]
  - DISORIENTATION [None]
  - LOSS OF CONSCIOUSNESS [None]
  - SEDATION [None]
  - HYPERTENSION [None]
  - ANXIETY [None]
